FAERS Safety Report 23756160 (Version 6)
Quarter: 2024Q3

REPORT INFORMATION
  Report Type: Spontaneous
  Country: JP (occurrence: JP)
  Receive Date: 20240418
  Receipt Date: 20240813
  Transmission Date: 20241016
  Serious: Yes (Hospitalization, Other)
  Sender: PFIZER
  Company Number: JP-MLMSERVICE-20240409-PI011673-00218-1

PATIENT
  Age: 60 Year
  Sex: Female
  Weight: 47 kg

DRUGS (3)
  1. ETANERCEPT [Suspect]
     Active Substance: ETANERCEPT
     Indication: Rheumatoid arthritis
     Dosage: 50 MG, WEEKLY FOR 12 YEARS
     Route: 058
  2. INFLIXIMAB [Suspect]
     Active Substance: INFLIXIMAB
     Indication: Rheumatoid arthritis
     Dosage: FOR ONE AND A HALF YEARS
     Route: 042
  3. METHOTREXATE SODIUM [Suspect]
     Active Substance: METHOTREXATE SODIUM
     Indication: Rheumatoid arthritis
     Dosage: 12 MG, WEEKLY USED FOR MORE THAN 15 YEARS PRIOR TO ONSET OF THE ADVERSE REACTION, INTERNALLY

REACTIONS (6)
  - Epstein-Barr virus associated lymphoproliferative disorder [Recovered/Resolved]
  - Epstein Barr virus positive mucocutaneous ulcer [Recovered/Resolved]
  - Mitral valve incompetence [Recovered/Resolved]
  - Aortic valve incompetence [Recovered/Resolved]
  - Tricuspid valve incompetence [Recovered/Resolved]
  - Cardiac failure [Recovered/Resolved]
